FAERS Safety Report 21582522 (Version 1)
Quarter: 2022Q4

REPORT INFORMATION
  Report Type: Report from Study
  Country: TR (occurrence: TR)
  Receive Date: 20221111
  Receipt Date: 20221111
  Transmission Date: 20230112
  Serious: Yes (Other)
  Sender: FDA-Public Use
  Company Number: TR-SUN PHARMACEUTICAL INDUSTRIES LTD-2022R1-363233

PATIENT

DRUGS (1)
  1. FLECAINIDE [Suspect]
     Active Substance: FLECAINIDE
     Indication: Supraventricular tachyarrhythmia
     Dosage: UNK, TOTAL DAILY DOSE OF 300 MG/DL
     Route: 064

REACTIONS (2)
  - Tachycardia foetal [Recovered/Resolved]
  - Foetal exposure during pregnancy [Unknown]
